FAERS Safety Report 17881626 (Version 1)
Quarter: 2020Q2

REPORT INFORMATION
  Report Type: Spontaneous
  Country: US (occurrence: US)
  Receive Date: 20200610
  Receipt Date: 20200610
  Transmission Date: 20200714
  Serious: No
  Sender: FDA-Public Use
  Company Number: US-SA-2020SA147527

PATIENT

DRUGS (11)
  1. CALCIUM [Concomitant]
     Active Substance: CALCIUM
  2. TURMERIC [CURCUMA LONGA] [Concomitant]
     Active Substance: HERBALS\TURMERIC
  3. D-MANNOSE [Concomitant]
  4. ZINC. [Concomitant]
     Active Substance: ZINC
  5. BIOTIN [Concomitant]
     Active Substance: BIOTIN
  6. VITAMINS NOS [Concomitant]
     Active Substance: VITAMINS
  7. AUBAGIO [Suspect]
     Active Substance: TERIFLUNOMIDE
     Indication: MULTIPLE SCLEROSIS
     Dosage: 14 MG, QD
     Route: 048
     Dates: start: 20180829
  8. UBIQUINOL [Concomitant]
     Active Substance: UBIQUINOL
  9. KRILL OIL [Concomitant]
     Active Substance: DIETARY SUPPLEMENT\KRILL OIL
  10. BROMELAIN [Concomitant]
     Active Substance: BROMELAINS
  11. PROBIOTICS NOS [Concomitant]
     Active Substance: PROBIOTICS NOS

REACTIONS (2)
  - Urinary tract infection [Unknown]
  - Bladder catheterisation [Unknown]
